FAERS Safety Report 18415761 (Version 3)
Quarter: 2021Q2

REPORT INFORMATION
  Report Type: Spontaneous
  Country: US (occurrence: US)
  Receive Date: 20201022
  Receipt Date: 20210624
  Transmission Date: 20210717
  Serious: Yes (Other)
  Sender: FDA-Public Use
  Company Number: US-PFIZER INC-2020408158

PATIENT
  Age: 54 Year
  Sex: Female

DRUGS (2)
  1. IBRANCE [Suspect]
     Active Substance: PALBOCICLIB
     Dosage: 100 MG
     Dates: start: 20200131
  2. IBRANCE [Suspect]
     Active Substance: PALBOCICLIB
     Dosage: 75 MG
     Dates: start: 20210517

REACTIONS (11)
  - Onychalgia [Unknown]
  - Arthralgia [Unknown]
  - Blood glucose abnormal [Unknown]
  - Nail discolouration [Unknown]
  - Onychoclasis [Unknown]
  - Alopecia [Not Recovered/Not Resolved]
  - Blood count abnormal [Unknown]
  - Nail disorder [Unknown]
  - Lupus-like syndrome [Unknown]
  - Fatigue [Unknown]
  - Hair texture abnormal [Unknown]

NARRATIVE: CASE EVENT DATE: 2020
